FAERS Safety Report 12862926 (Version 2)
Quarter: 2016Q4

REPORT INFORMATION
  Report Type: Spontaneous
  Country: BR (occurrence: BR)
  Receive Date: 20161019
  Receipt Date: 20161130
  Transmission Date: 20170207
  Serious: Yes (Hospitalization, Other)
  Sender: FDA-Public Use
  Company Number: PHHY2016BR142500

PATIENT
  Sex: Female

DRUGS (1)
  1. EXELON PATCH [Suspect]
     Active Substance: RIVASTIGMINE
     Indication: SENILE DEMENTIA
     Dosage: 9.5 MG, QD PATCH 10 (CM2)
     Route: 062

REACTIONS (6)
  - Pneumonia [Unknown]
  - Dysstasia [Unknown]
  - Abasia [Unknown]
  - Asthenia [Unknown]
  - Product use issue [Unknown]
  - Product adhesion issue [Unknown]

NARRATIVE: CASE EVENT DATE: 201609
